FAERS Safety Report 4316716-1 (Version None)
Quarter: 2004Q1

REPORT INFORMATION
  Report Type: 
  Country: None (occurrence: None)
  Receive Date: 20040311
  Receipt Date: 20040224
  Transmission Date: 20041129
  Serious: Yes (Other)
  Sender: FDA-Public Use
  Company Number: US-JNJFOC-20031004976

PATIENT
  Age: 44 Year
  Sex: Female

DRUGS (5)
  1. REMICADE [Suspect]
     Indication: CROHN'S DISEASE
     Dosage: 5 MG/KG, 1 IN 1 TOTAL, INTRAVENOUS
     Route: 042
  2. MERCAPTOPURINE [Concomitant]
  3. METRONIDAZOLE [Concomitant]
  4. ASACOL [Concomitant]
  5. ZOLOFT [Concomitant]

REACTIONS (5)
  - ABORTION SPONTANEOUS [None]
  - BLIGHTED OVUM [None]
  - COMPLICATIONS OF MATERNAL EXPOSURE TO THERAPEUTIC DRUGS [None]
  - DRUG EXPOSURE DURING PREGNANCY [None]
  - PREGNANCY [None]
